FAERS Safety Report 8144072-X (Version None)
Quarter: 2012Q1

REPORT INFORMATION
  Report Type: 
  Country: None (occurrence: None)
  Receive Date: 20120217
  Receipt Date: 20120208
  Transmission Date: 20120608
  Serious: Yes (Hospitalization, Other)
  Sender: FDA-Public Use
  Company Number: BR-ASTRAZENECA-2012SE06373

PATIENT
  Age: 16285 Day
  Sex: Female

DRUGS (14)
  1. CALCITRIOL [Concomitant]
     Route: 048
     Dates: start: 20111026
  2. LEVOTHYROXINE SODIUM [Concomitant]
     Route: 048
     Dates: start: 20110727, end: 20110810
  3. CODEINE SUL TAB [Suspect]
     Route: 065
  4. CALCIUM [Concomitant]
     Indication: HYPOPARATHYROIDISM
     Route: 048
  5. LEVOTHYROXINE SODIUM [Concomitant]
     Indication: THYROIDECTOMY
     Route: 048
     Dates: end: 20110726
  6. LEVOTHYROXINE SODIUM [Concomitant]
     Indication: HYPOTHYROIDISM
     Route: 048
     Dates: end: 20110726
  7. VANDETANIB [Suspect]
     Indication: THYROID CANCER
     Route: 048
     Dates: start: 20110726, end: 20120127
  8. VANDETANIB [Suspect]
     Route: 048
     Dates: start: 20120208
  9. CALCITRIOL [Concomitant]
     Indication: HYPOPARATHYROIDISM
     Route: 048
     Dates: end: 20110726
  10. LEVOTHYROXINE SODIUM [Concomitant]
     Route: 048
     Dates: start: 20110727, end: 20110810
  11. LEVOTHYROXINE SODIUM [Concomitant]
     Route: 048
     Dates: start: 20110811, end: 20120125
  12. CALCITRIOL [Concomitant]
     Route: 048
     Dates: start: 20110727, end: 20110826
  13. CALCITRIOL [Concomitant]
     Route: 048
     Dates: start: 20110827, end: 20111025
  14. LEVOTHYROXINE SODIUM [Concomitant]
     Route: 048
     Dates: start: 20110811, end: 20120125

REACTIONS (1)
  - CHEST PAIN [None]
